FAERS Safety Report 16925326 (Version 1)
Quarter: 2019Q4

REPORT INFORMATION
  Report Type: Report from Study
  Country: CN (occurrence: CN)
  Receive Date: 20191016
  Receipt Date: 20191016
  Transmission Date: 20200122
  Serious: Yes (Hospitalization, Other)
  Sender: FDA-Public Use
  Company Number: CN-VIIV HEALTHCARE LIMITED-CN2019APC185403

PATIENT

DRUGS (8)
  1. TENOFOVIR [Concomitant]
     Active Substance: TENOFOVIR
     Indication: ANTIVIRAL TREATMENT
     Dosage: 300 MG, QD
     Route: 048
     Dates: start: 20190318
  2. MAGNESIUM ISOGLYCYRRHIZINATE INJECTION [Concomitant]
     Dosage: 200 MG, QD
     Route: 042
     Dates: start: 20190814, end: 20190905
  3. DOLUTEGRAVIR [Suspect]
     Active Substance: DOLUTEGRAVIR
     Indication: HIV TEST POSITIVE
     Dosage: 1 DF, QD
     Route: 048
     Dates: start: 20190318, end: 20190613
  4. ADEMETIONINE BUTANEDISULFONATE INJECTION [Concomitant]
     Dosage: 1 G, QD
     Route: 042
     Dates: start: 20190815, end: 20190823
  5. ADEMETIONINE BUTANEDISULFONATE INJECTION [Concomitant]
     Indication: JAUNDICE
     Dosage: 0.5 G, QD
     Route: 042
     Dates: start: 20190613, end: 20190702
  6. LAMIVUDINE. [Concomitant]
     Active Substance: LAMIVUDINE
     Indication: ANTIVIRAL TREATMENT
     Dosage: 300 MG, QD
     Route: 048
     Dates: start: 20190318
  7. DOLUTEGRAVIR [Suspect]
     Active Substance: DOLUTEGRAVIR
     Dosage: 1 DF, QD
     Route: 048
     Dates: start: 20190701, end: 20190814
  8. ADEMETIONINE BUTANEDISULFONATE INJECTION [Concomitant]
     Dosage: 1 G, QD
     Route: 042
     Dates: start: 20190831, end: 20190905

REACTIONS (2)
  - Drug-induced liver injury [Recovered/Resolved]
  - Hepatic function abnormal [Recovering/Resolving]

NARRATIVE: CASE EVENT DATE: 20190613
